FAERS Safety Report 25629983 (Version 8)
Quarter: 2025Q4

REPORT INFORMATION
  Report Type: Report from Study
  Country: US (occurrence: US)
  Receive Date: 20250801
  Receipt Date: 20251211
  Transmission Date: 20260118
  Serious: Yes (Hospitalization, Other)
  Sender: SAREPTA THERAPEUTICS
  Company Number: US-SAREPTA THERAPEUTICS INC.-SRP2025-006286

PATIENT
  Sex: Male
  Weight: 85 kg

DRUGS (14)
  1. ELEVIDYS [Suspect]
     Active Substance: DELANDISTROGENE MOXEPARVOVEC-ROKL
     Indication: Duchenne muscular dystrophy
     Dosage: UNK, SINGLE
     Dates: start: 20250610, end: 20250610
  2. DELTASONE [Concomitant]
     Active Substance: PREDNISONE
     Indication: Product used for unknown indication
     Dosage: 60 MILLIGRAM, QD
     Dates: end: 202507
  3. DELTASONE [Concomitant]
     Active Substance: PREDNISONE
     Dosage: 120 MILLIGRAM, QD
     Dates: start: 202507, end: 20250822
  4. DELTASONE [Concomitant]
     Active Substance: PREDNISONE
     Dosage: 80 MILLIGRAM, QD
     Dates: start: 20250823, end: 20250829
  5. DELTASONE [Concomitant]
     Active Substance: PREDNISONE
     Dosage: 60 MILLIGRAM, QD
     Dates: start: 20250830, end: 20250903
  6. DELTASONE [Concomitant]
     Active Substance: PREDNISONE
     Dosage: 40 MILLIGRAM, QD
     Dates: start: 20250904
  7. PROAIR HFA [Concomitant]
     Active Substance: ALBUTEROL SULFATE
     Indication: Product used for unknown indication
     Dosage: 90 MCG. TAKE 1-2 PUFFS BY INHALATION EVERY 4 HOURS IF NEEDED
  8. PROVENTIL HFA [Concomitant]
     Active Substance: ALBUTEROL SULFATE
     Indication: Product used for unknown indication
     Dosage: UNK 90 MCG/ACTUATION INHALER
  9. VENTOLIN HFA [Concomitant]
     Active Substance: ALBUTEROL SULFATE
     Indication: Product used for unknown indication
     Dosage: UNK 90 MCG/ACTUATION INHALER
  10. SYMBICORT [Concomitant]
     Active Substance: BUDESONIDE\FORMOTEROL FUMARATE DIHYDRATE
     Indication: Product used for unknown indication
     Dosage: 80-4.5 MCG, 2 PUFFS BY INHALATION 2 TIMES DAILY
  11. COREG [Concomitant]
     Active Substance: CARVEDILOL
     Indication: Product used for unknown indication
     Dosage: 6.25 MILLIGRAM, BID
  12. INSPRA [Concomitant]
     Active Substance: EPLERENONE
     Indication: Product used for unknown indication
     Dosage: 25 MILLIGRAM, QD
  13. PROTONIX [Concomitant]
     Active Substance: PANTOPRAZOLE SODIUM
     Indication: Product used for unknown indication
     Dosage: 40 MILLIGRAM, QD (DELAYED RELEASE TABLET)
  14. ENTRESTO [Concomitant]
     Active Substance: SACUBITRIL\VALSARTAN
     Indication: Product used for unknown indication
     Dosage: 49-51 MG TABLET

REACTIONS (33)
  - Mesenteric vein thrombosis [Unknown]
  - Septic shock [Unknown]
  - Ascites [Recovering/Resolving]
  - Gastrointestinal necrosis [Unknown]
  - Intestinal ischaemia [Unknown]
  - Pneumonia [Unknown]
  - Disseminated intravascular coagulation [Not Recovered/Not Resolved]
  - Haematochezia [Recovered/Resolved]
  - Liver injury [Recovering/Resolving]
  - Melaena [Unknown]
  - Pulmonary embolism [Recovering/Resolving]
  - Vomiting [Unknown]
  - Oedema [Recovering/Resolving]
  - Axonal neuropathy [Unknown]
  - Peritoneal candidiasis [Unknown]
  - Lactobacillus infection [Recovering/Resolving]
  - Pneumoperitoneum [Unknown]
  - Acute hepatic failure [Unknown]
  - Acute kidney injury [Unknown]
  - Thrombocytopenia [Not Recovered/Not Resolved]
  - Troponin increased [Unknown]
  - Leukocytosis [Recovered/Resolved]
  - Anxiety [Recovering/Resolving]
  - Bronchial secretion retention [Recovering/Resolving]
  - Cough [Unknown]
  - Oxygen saturation decreased [Unknown]
  - Cholelithiasis [Unknown]
  - Hepatic steatosis [Unknown]
  - Hypoalbuminaemia [Not Recovered/Not Resolved]
  - Muscular weakness [Unknown]
  - Myopathy [Recovering/Resolving]
  - Splenomegaly [Unknown]
  - Intra-abdominal fluid collection [Unknown]

NARRATIVE: CASE EVENT DATE: 20250101
